FAERS Safety Report 4502668-8 (Version None)
Quarter: 2004Q4

REPORT INFORMATION
  Report Type: 
  Country: None (occurrence: None)
  Receive Date: 20041110
  Receipt Date: 20041027
  Transmission Date: 20050328
  Serious: Yes (Hospitalization)
  Sender: FDA-Public Use
  Company Number: A02200403207

PATIENT
  Age: 44 Year
  Sex: Female

DRUGS (8)
  1. STILNOX (ZOLPIDEM)-TABLET-10 MG [Suspect]
     Indication: SLEEP DISORDER
     Dosage: 10 MG OD, ORAL
     Route: 048
  2. LAROXYL- (AMITRIPYLINE HYDROCHLORIDE)- TABLET - 25 MG [Suspect]
     Dosage: 25MG OD, ORAL
     Route: 048
     Dates: start: 20040715, end: 20040723
  3. ATHYMIL - (MIANSERIN HYDROCHLORIDE) - TABLET - 30 MG [Suspect]
     Dosage: 30 MG OD, ORAL
     Route: 048
     Dates: start: 20040723
  4. NEURONTIN - (GABAPENTIN) - TABLET - 600 MG [Suspect]
     Dosage: 600 MG TID, ORAL
     Route: 048
     Dates: start: 20040601, end: 20040723
  5. DURAGESIC [Suspect]
     Dosage: 25 MCG OD, TRANSDERMAL
     Route: 062
     Dates: start: 20040723, end: 20040725
  6. ACTISKENAN- (MORPHINE SULFATE)- CAPSULE- 10 MG [Suspect]
     Dosage: 10 MG }QID; ORAL
     Route: 048
     Dates: start: 20040715, end: 20040723
  7. FORLAX (MACROGOL) [Concomitant]
  8. MINIDRIL (LEVONORGESTREL/ETHINYLESTRADIOL) [Concomitant]

REACTIONS (11)
  - AGGRESSION [None]
  - AGITATION [None]
  - ANXIETY [None]
  - CEREBRAL DISORDER [None]
  - CEREBRAL HAEMANGIOMA [None]
  - DELIRIUM [None]
  - LACRIMATION INCREASED [None]
  - NIGHTMARE [None]
  - SUICIDAL IDEATION [None]
  - TRISMUS [None]
  - WEIGHT DECREASED [None]
